FAERS Safety Report 7277839-0 (Version None)
Quarter: 2011Q1

REPORT INFORMATION
  Report Type: 
  Country: None (occurrence: None)
  Receive Date: 20110207
  Receipt Date: 20110201
  Transmission Date: 20110831
  Serious: Yes (Death)
  Sender: FDA-Public Use
  Company Number: BR-ACTELION-A-CH2011-44562

PATIENT
  Sex: Male

DRUGS (1)
  1. TRACLEER [Suspect]
     Dosage: 125 MG, BID
     Route: 048

REACTIONS (4)
  - CARDIAC DISORDER [None]
  - EMPHYSEMA [None]
  - DYSPNOEA [None]
  - GAIT DISTURBANCE [None]
